FAERS Safety Report 5597761-5 (Version None)
Quarter: 2007Q4

REPORT INFORMATION
  Report Type: 
  Country: None (occurrence: None)
  Receive Date: 20071221
  Receipt Date: 20070928
  Transmission Date: 20080405
  Serious: No
  Sender: FDA-Public Use
  Company Number: SPV1-2007-04346

PATIENT
  Age: 52 Year
  Sex: Female
  Weight: 76.2 kg

DRUGS (6)
  1. VYVANSE [Suspect]
     Indication: ATTENTION DEFICIT/HYPERACTIVITY DISORDER
     Dosage: 30 MG, 1X/DAY:QD, ORAL ; 50 MG, 1X/DAY:QD, ORAL ; 70 MG, 1X/DAY: QD, ORAL
     Route: 048
     Dates: start: 20070908, end: 20070915
  2. VYVANSE [Suspect]
     Indication: ATTENTION DEFICIT/HYPERACTIVITY DISORDER
     Dosage: 30 MG, 1X/DAY:QD, ORAL ; 50 MG, 1X/DAY:QD, ORAL ; 70 MG, 1X/DAY: QD, ORAL
     Route: 048
     Dates: start: 20070915, end: 20070918
  3. VYVANSE [Suspect]
     Indication: ATTENTION DEFICIT/HYPERACTIVITY DISORDER
     Dosage: 30 MG, 1X/DAY:QD, ORAL ; 50 MG, 1X/DAY:QD, ORAL ; 70 MG, 1X/DAY: QD, ORAL
     Route: 048
     Dates: start: 20070918
  4. GABAPENTIN [Concomitant]
  5. AMITRIPTYLINE HCL [Concomitant]
  6. PROZAC [Concomitant]

REACTIONS (3)
  - DYSGEUSIA [None]
  - OEDEMA MOUTH [None]
  - OFF LABEL USE [None]
